FAERS Safety Report 10977823 (Version 1)
Quarter: 2015Q2

REPORT INFORMATION
  Report Type: Spontaneous
  Country: US (occurrence: None)
  Receive Date: 20150401
  Receipt Date: 20150401
  Transmission Date: 20150821
  Serious: Yes (Other)
  Sender: FDA-Public Use
  Company Number: None

PATIENT
  Age: 44 Year
  Sex: Female
  Weight: 63.5 kg

DRUGS (4)
  1. NAPROXEN. [Concomitant]
     Active Substance: NAPROXEN
  2. OXYCODONE [Suspect]
     Active Substance: OXYCODONE
     Indication: TORTICOLLIS
     Dosage: 1 TABLET AS NECESSARY
     Route: 048
     Dates: start: 20150329, end: 20150329
  3. CYCLOBENZEPRENE [Concomitant]
  4. IBUPROFEN. [Concomitant]
     Active Substance: IBUPROFEN

REACTIONS (5)
  - Dizziness [None]
  - Asthenia [None]
  - Cold sweat [None]
  - Fatigue [None]
  - Dysarthria [None]

NARRATIVE: CASE EVENT DATE: 20150329
